FAERS Safety Report 17614590 (Version 4)
Quarter: 2021Q2

REPORT INFORMATION
  Report Type: Report from Study
  Country: US (occurrence: US)
  Receive Date: 20200402
  Receipt Date: 20210601
  Transmission Date: 20210716
  Serious: Yes (Hospitalization)
  Sender: FDA-Public Use
  Company Number: US-GLAXOSMITHKLINE-US2020GSK051004

PATIENT
  Age: 56 Year
  Sex: Female
  Weight: 60.32 kg

DRUGS (16)
  1. PLACEBO [Suspect]
     Active Substance: UNSPECIFIED INGREDIENT
     Indication: OVARIAN CANCER
     Dosage: 500 MG
     Dates: start: 20190827, end: 20190827
  2. PACLITAXEL. [Suspect]
     Active Substance: PACLITAXEL
     Dosage: 298 MG
     Route: 042
     Dates: start: 20191231, end: 20191231
  3. CISPLATIN. [Concomitant]
     Active Substance: CISPLATIN
  4. NIRAPARIB [Suspect]
     Active Substance: NIRAPARIB
     Dosage: 200 MG
     Dates: end: 20200302
  5. BEVACIZUMAB. [Suspect]
     Active Substance: BEVACIZUMAB
     Dosage: UNK
     Route: 042
     Dates: start: 20200303, end: 20200303
  6. CARBOPLATIN. [Suspect]
     Active Substance: CARBOPLATIN
     Dosage: 495 AUC
     Route: 042
     Dates: start: 20191231, end: 20191231
  7. BEVACIZUMAB. [Suspect]
     Active Substance: BEVACIZUMAB
     Indication: OVARIAN CANCER
     Dosage: 7.5 MG/KG
     Route: 042
     Dates: start: 20190805, end: 20190805
  8. BEVACIZUMAB. [Suspect]
     Active Substance: BEVACIZUMAB
     Dosage: 450 MG/KG
     Route: 042
     Dates: start: 20200211, end: 20200211
  9. PLACEBO [Suspect]
     Active Substance: UNSPECIFIED INGREDIENT
     Dosage: 1000 MG
     Dates: start: 20200121, end: 20200121
  10. CARBOPLATIN. [Suspect]
     Active Substance: CARBOPLATIN
     Indication: OVARIAN CANCER
     Dosage: 5 AUC
     Dates: start: 20190805, end: 20190805
  11. PACLITAXEL. [Suspect]
     Active Substance: PACLITAXEL
     Indication: OVARIAN CANCER
     Dosage: 300 MG
     Route: 042
     Dates: start: 20190805, end: 20190805
  12. PLACEBO [Suspect]
     Active Substance: UNSPECIFIED INGREDIENT
     Dosage: UNK
     Dates: start: 20200303, end: 20200303
  13. DOCETAXEL. [Concomitant]
     Active Substance: DOCETAXEL
  14. BENADRYL [Concomitant]
     Active Substance: DIPHENHYDRAMINE HYDROCHLORIDE
     Indication: PETECHIAE
     Dosage: 50 MG, SINGLE
     Route: 048
     Dates: start: 20200302, end: 20200302
  15. NIRAPARIB [Suspect]
     Active Substance: NIRAPARIB
     Indication: OVARIAN CANCER
     Dosage: 200 MG
     Dates: start: 20200211
  16. NIRAPARIB [Suspect]
     Active Substance: NIRAPARIB
     Dosage: UNK
     Dates: end: 20200303

REACTIONS (2)
  - Aplasia pure red cell [Recovered/Resolved]
  - Acquired amegakaryocytic thrombocytopenia [Recovered/Resolved]

NARRATIVE: CASE EVENT DATE: 20200302
